FAERS Safety Report 6988522-0 (Version None)
Quarter: 2010Q3

REPORT INFORMATION
  Report Type: 
  Country: None (occurrence: None)
  Receive Date: 20100916
  Receipt Date: 20100907
  Transmission Date: 20110219
  Serious: Yes (Other)
  Sender: FDA-Public Use
  Company Number: US-PFIZER INC-2010088878

PATIENT
  Sex: Male
  Weight: 65.3 kg

DRUGS (6)
  1. SUTENT [Suspect]
     Indication: RENAL CANCER
     Dosage: 50 MG, 1X/DAY
     Route: 048
     Dates: start: 20100220
  2. CELEBREX [Suspect]
     Indication: ARTHRITIS
     Dosage: 100 MG, AS NEEDED
     Route: 048
     Dates: start: 20100401, end: 20100101
  3. CELEBREX [Suspect]
     Indication: ADENOMATOUS POLYPOSIS COLI
  4. PERCOCET [Concomitant]
     Indication: ARTHRITIS
     Dosage: DAILY
     Route: 048
  5. VISTARIL [Concomitant]
     Dosage: 20 MG, 1X/DAY
     Route: 048
  6. ZESTRIL [Concomitant]
     Indication: HYPERTENSION

REACTIONS (7)
  - ABDOMINAL DISCOMFORT [None]
  - BLOOD CALCIUM DECREASED [None]
  - DIARRHOEA [None]
  - GASTROINTESTINAL TOXICITY [None]
  - MOUTH ULCERATION [None]
  - ORAL PAIN [None]
  - WEIGHT DECREASED [None]
